FAERS Safety Report 10852803 (Version 1)
Quarter: 2015Q1

REPORT INFORMATION
  Report Type: Spontaneous
  Country: US (occurrence: US)
  Receive Date: 20150222
  Receipt Date: 20150222
  Transmission Date: 20150721
  Serious: No
  Sender: FDA-Public Use
  Company Number: US-ALLERGAN-1401299US

PATIENT
  Sex: Male

DRUGS (1)
  1. BOTOX [Suspect]
     Active Substance: ONABOTULINUMTOXINA
     Indication: MUSCLE SPASTICITY
     Dosage: 170 UNITS, SINGLE
     Route: 030
     Dates: start: 20140123, end: 20140123

REACTIONS (1)
  - Rash [Unknown]

NARRATIVE: CASE EVENT DATE: 20140123
